FAERS Safety Report 5703175-7 (Version None)
Quarter: 2008Q2

REPORT INFORMATION
  Report Type: 
  Country: None (occurrence: None)
  Receive Date: 20080411
  Receipt Date: 20080404
  Transmission Date: 20081010
  Serious: Yes (Other)
  Sender: FDA-Public Use
  Company Number: US-PURDUE-USA_2008_0031410

PATIENT
  Sex: Female
  Weight: 55 kg

DRUGS (6)
  1. PERI-COLACE 8.6 MG/50 MG [Suspect]
     Indication: SURGERY
     Dosage: 2 TABLET, DAILY
     Dates: start: 20080131
  2. LISINOPRIL [Concomitant]
     Dosage: 10 MG, DAILY
  3. TOPROL-XL [Concomitant]
     Dosage: 50 MG, DAILY
  4. IMIPRAMINE [Concomitant]
     Dosage: 10 MG, DAILY
  5. DETROL [Concomitant]
     Dosage: 5 MG, DAILY
  6. VITAMIN E [Suspect]
     Indication: DRUG USE FOR UNKNOWN INDICATION
     Dates: start: 20080201, end: 20080201

REACTIONS (2)
  - SUPRAVENTRICULAR EXTRASYSTOLES [None]
  - TACHYCARDIA [None]
